FAERS Safety Report 6413059-7 (Version None)
Quarter: 2009Q4

REPORT INFORMATION
  Report Type: 
  Country: None (occurrence: None)
  Receive Date: 20091023
  Receipt Date: 20091023
  Transmission Date: 20100525
  Serious: Yes (Death, Hospitalization)
  Sender: FDA-Public Use
  Company Number: None

PATIENT
  Sex: Male
  Weight: 77.4 kg

DRUGS (3)
  1. CARBOPLATIN [Suspect]
     Dosage: 750 MG
  2. CETUXIMAB (ERITUX) [Suspect]
     Dosage: 2530 MG
  3. TAXOL [Suspect]
     Dosage: 400 MG

REACTIONS (2)
  - ASTHENIA [None]
  - FEBRILE NEUTROPENIA [None]
